FAERS Safety Report 20985448 (Version 3)
Quarter: 2022Q3

REPORT INFORMATION
  Report Type: Spontaneous
  Country: RU (occurrence: RU)
  Receive Date: 20220621
  Receipt Date: 20220811
  Transmission Date: 20221026
  Serious: Yes (Death, Other)
  Sender: FDA-Public Use
  Company Number: RU-SA-2022SA234064

PATIENT
  Age: 68 Year
  Sex: Female

DRUGS (1)
  1. ISATUXIMAB [Suspect]
     Active Substance: ISATUXIMAB
     Indication: Plasma cell myeloma
     Dosage: 500+100
     Route: 041
     Dates: start: 202204

REACTIONS (7)
  - Death [Fatal]
  - Hepatic encephalopathy [Unknown]
  - Aspartate aminotransferase increased [Unknown]
  - Eructation [Unknown]
  - Asthenia [Unknown]
  - Alanine aminotransferase increased [Recovering/Resolving]
  - Nausea [Unknown]

NARRATIVE: CASE EVENT DATE: 20220101
